FAERS Safety Report 10979629 (Version 1)
Quarter: 2015Q2

REPORT INFORMATION
  Report Type: Spontaneous
  Country: US (occurrence: US)
  Receive Date: 20150402
  Receipt Date: 20150402
  Transmission Date: 20150821
  Serious: No
  Sender: FDA-Public Use
  Company Number: US-SANOFI-AVENTIS-2013SA044185

PATIENT
  Age: 4 Year
  Sex: Male
  Weight: 20.4 kg

DRUGS (4)
  1. ALLEGRA [Suspect]
     Active Substance: FEXOFENADINE HYDROCHLORIDE
     Indication: HYPERSENSITIVITY
     Dosage: 1 TSP
     Route: 048
     Dates: start: 201302, end: 20130505
  2. ALLEGRA [Suspect]
     Active Substance: FEXOFENADINE HYDROCHLORIDE
     Indication: SNORING
     Dosage: 1 TSP
     Route: 048
     Dates: start: 201302, end: 20130505
  3. FLUTICASONE [Concomitant]
     Active Substance: FLUTICASONE\FLUTICASONE PROPIONATE
     Dates: start: 201212, end: 201303
  4. ALLEGRA [Suspect]
     Active Substance: FEXOFENADINE HYDROCHLORIDE
     Indication: NASAL CONGESTION
     Dosage: 1 TSP
     Route: 048
     Dates: start: 201302, end: 20130505

REACTIONS (2)
  - Dysgeusia [Recovered/Resolved]
  - Drug ineffective [Unknown]
